FAERS Safety Report 17982975 (Version 1)
Quarter: 2020Q3

REPORT INFORMATION
  Report Type: Spontaneous
  Country: US (occurrence: US)
  Receive Date: 20200702
  Receipt Date: 20200702
  Transmission Date: 20201103
  Serious: Yes (Death)
  Sender: FDA-Public Use
  Company Number: None

PATIENT
  Age: 81 Year
  Sex: Female

DRUGS (19)
  1. GABAPENTIN. [Concomitant]
     Active Substance: GABAPENTIN
  2. METOLAZONE. [Concomitant]
     Active Substance: METOLAZONE
  3. MONTELUKAST [Concomitant]
     Active Substance: MONTELUKAST SODIUM
  4. PREVDNT [Concomitant]
  5. CLINDAMYCIN. [Concomitant]
     Active Substance: CLINDAMYCIN
  6. DOXYCYCL HYC [Concomitant]
  7. IPRATROPIUM [Concomitant]
     Active Substance: IPRATROPIUM
  8. ALBUTEROL AER [Concomitant]
  9. ALBUTEROL NEB [Concomitant]
     Active Substance: ALBUTEROL
  10. CLOTRIMAZOLE. [Concomitant]
     Active Substance: CLOTRIMAZOLE
  11. MIDODRINE [Concomitant]
     Active Substance: MIDODRINE
  12. VANCOMYCIN [Concomitant]
     Active Substance: VANCOMYCIN
  13. NITROFUR MAC [Concomitant]
     Active Substance: NITROFURANTOIN
  14. SILDENAFIL 20MG TAB [Suspect]
     Active Substance: SILDENAFIL
     Indication: PULMONARY ARTERIAL HYPERTENSION
     Route: 048
     Dates: start: 20191128
  15. POT CL MICRO [Concomitant]
  16. METOPROL SUC [Concomitant]
  17. PREDNISONE. [Concomitant]
     Active Substance: PREDNISONE
  18. PREVIDENT [Concomitant]
     Active Substance: SODIUM FLUORIDE
  19. TORSEMIDE. [Concomitant]
     Active Substance: TORSEMIDE

REACTIONS (1)
  - Death [None]

NARRATIVE: CASE EVENT DATE: 20200630
